FAERS Safety Report 24816019 (Version 1)
Quarter: 2025Q1

REPORT INFORMATION
  Report Type: Spontaneous
  Country: CN (occurrence: CN)
  Receive Date: 20250107
  Receipt Date: 20250107
  Transmission Date: 20250408
  Serious: Yes (Life-Threatening)
  Sender: ROCHE
  Company Number: CN-BoehringerIngelheim-2025-BI-000208

PATIENT
  Age: 75 Year
  Sex: Female
  Weight: 45.0 kg

DRUGS (1)
  1. ALTEPLASE [Suspect]
     Active Substance: ALTEPLASE
     Indication: Thrombolysis
     Route: 042
     Dates: start: 20241227, end: 20241227

REACTIONS (1)
  - Prothrombin time prolonged [Unknown]

NARRATIVE: CASE EVENT DATE: 20241228
